FAERS Safety Report 18054132 (Version 1)
Quarter: 2020Q3

REPORT INFORMATION
  Report Type: Spontaneous
  Country: US (occurrence: US)
  Receive Date: 20200721
  Receipt Date: 20200721
  Transmission Date: 20201103
  Serious: Yes (Death)
  Sender: FDA-Public Use
  Company Number: None

PATIENT
  Age: 64 Year
  Sex: Female
  Weight: 60.78 kg

DRUGS (2)
  1. JANTOVEN [Concomitant]
     Active Substance: WARFARIN SODIUM
     Dates: start: 20191020
  2. JANTOVEN [Suspect]
     Active Substance: WARFARIN SODIUM

REACTIONS (4)
  - Product substitution issue [None]
  - Gastrointestinal haemorrhage [None]
  - Vaginal haemorrhage [None]
  - Haemorrhage intracranial [None]

NARRATIVE: CASE EVENT DATE: 20200714
